FAERS Safety Report 4692881-1 (Version None)
Quarter: 2005Q2

REPORT INFORMATION
  Report Type: 
  Country: None (occurrence: None)
  Receive Date: 20050615
  Receipt Date: 20050603
  Transmission Date: 20051028
  Serious: Yes (Hospitalization)
  Sender: FDA-Public Use
  Company Number: 2005056759

PATIENT
  Age: 48 Year
  Sex: Female

DRUGS (1)
  1. NEURONTIN [Suspect]
     Indication: OSTEOARTHRITIS
     Dosage: (400 MG), ORAL
     Route: 048
     Dates: start: 20021101, end: 20040801

REACTIONS (2)
  - IRRITABLE BOWEL SYNDROME [None]
  - SEROTONIN SYNDROME [None]
